FAERS Safety Report 8268822-7 (Version None)
Quarter: 2012Q2

REPORT INFORMATION
  Report Type: 
  Country: None (occurrence: None)
  Receive Date: 20120409
  Receipt Date: 20120329
  Transmission Date: 20120825
  Serious: Yes (Other)
  Sender: FDA-Public Use
  Company Number: US-ELI_LILLY_AND_COMPANY-US201010001128

PATIENT
  Sex: Female
  Weight: 67 kg

DRUGS (21)
  1. LEXAPRO [Concomitant]
     Dosage: 5 MG, QD
  2. AMIODARONE HYDROCHLORIDE [Concomitant]
     Dosage: 200 MG, QD
  3. FORTEO [Suspect]
     Dosage: 20 UG, QD
     Route: 065
  4. METOPROLOL TARTRATE [Concomitant]
     Dosage: 50 MG, BID
     Route: 048
  5. SOTALOL HCL [Concomitant]
     Dosage: 80 MG, BID
  6. FORTEO [Suspect]
     Dosage: 20 UG, DAILY (1/D)
     Route: 065
     Dates: start: 20101201
  7. METOPROLOL TARTRATE [Concomitant]
     Dosage: 100 MG, BID
  8. LOSARTAN POTASSIUM AND HYDROCHLOROTHIAZIDE [Concomitant]
     Dosage: UNK MG, QD
  9. FORTEO [Suspect]
     Dosage: 20 UG, DAILY (1/D)
     Route: 065
  10. DILTIAZEM HCL [Concomitant]
     Indication: CARDIAC DISORDER
  11. PRADAXA [Concomitant]
     Dosage: 150 MG, BID
  12. LIPITOR [Concomitant]
     Dosage: 10 MG, QD
     Route: 048
  13. FORTEO [Suspect]
     Dosage: 20 UG, DAILY (1/D)
     Route: 065
  14. FORTEO [Suspect]
     Dosage: 20 UG, QD
  15. NOVOLOG [Concomitant]
  16. DIGOXIN [Concomitant]
     Indication: CARDIAC DISORDER
     Dosage: 125 UG, QD
     Route: 058
  17. LASIX [Concomitant]
     Indication: SWELLING
     Dosage: 40 MG, PRN
  18. FORTEO [Suspect]
     Indication: OSTEOPOROSIS
     Dosage: 20 UG, DAILY (1/D)
     Route: 065
     Dates: start: 20100908
  19. FORTEO [Suspect]
     Dosage: 20 UG, QD
     Route: 065
  20. FORTEO [Suspect]
     Dosage: 20 UG, QD
  21. FORTEO [Suspect]

REACTIONS (16)
  - MUSCULOSKELETAL DISCOMFORT [None]
  - ATRIAL FIBRILLATION [None]
  - HEART RATE ABNORMAL [None]
  - PAIN IN EXTREMITY [None]
  - FATIGUE [None]
  - ROAD TRAFFIC ACCIDENT [None]
  - SINUS BRADYCARDIA [None]
  - LEFT VENTRICULAR HYPERTROPHY [None]
  - JOINT SWELLING [None]
  - MUSCLE SPASMS [None]
  - MITRAL VALVE PROLAPSE [None]
  - MUSCULOSKELETAL PAIN [None]
  - OEDEMA PERIPHERAL [None]
  - ARTHRALGIA [None]
  - ATRIOVENTRICULAR BLOCK FIRST DEGREE [None]
  - HEADACHE [None]
